FAERS Safety Report 24647242 (Version 1)
Quarter: 2024Q4

REPORT INFORMATION
  Report Type: Spontaneous
  Country: SE (occurrence: SE)
  Receive Date: 20241121
  Receipt Date: 20241121
  Transmission Date: 20250115
  Serious: Yes (Hospitalization)
  Sender: BAYER HEALTHCARE PHARMACEUTICALS INC.
  Company Number: SE-BAYER-2024A164146

PATIENT
  Age: 22 Year
  Sex: Female

DRUGS (2)
  1. KYLEENA [Suspect]
     Active Substance: LEVONORGESTREL
     Indication: Sexually active
     Dosage: 17.5?G/DAY
     Route: 015
     Dates: start: 20230111, end: 20241105
  2. CITALOPRAM [Concomitant]
     Active Substance: CITALOPRAM
     Indication: Depression
     Dosage: UNK

REACTIONS (2)
  - Cyst [Not Recovered/Not Resolved]
  - Device use issue [None]

NARRATIVE: CASE EVENT DATE: 20230111
